FAERS Safety Report 6272576-3 (Version None)
Quarter: 2009Q3

REPORT INFORMATION
  Report Type: 
  Country: None (occurrence: None)
  Receive Date: 20090717
  Receipt Date: 20090710
  Transmission Date: 20100115
  Serious: Yes (Other)
  Sender: FDA-Public Use
  Company Number: NL-ABBOTT-09P-114-0583299-01

PATIENT
  Sex: Female
  Weight: 80 kg

DRUGS (10)
  1. HUMIRA [Suspect]
     Indication: RHEUMATOID ARTHRITIS
     Route: 058
     Dates: start: 20040419, end: 20090420
  2. METHOTREXATE [Concomitant]
     Indication: RHEUMATOID ARTHRITIS
     Dates: start: 19950208
  3. DICLOFENAC [Concomitant]
     Indication: RHEUMATOID ARTHRITIS
     Dates: start: 19930928
  4. FOLIUMZUUR [Concomitant]
     Indication: VITAMIN SUPPLEMENTATION
     Dates: start: 19950208
  5. NEXIUM [Concomitant]
     Indication: PROPHYLAXIS AGAINST GASTROINTESTINAL ULCER
     Dates: start: 20020206
  6. ACENOCOUMAROL [Concomitant]
     Indication: THROMBOSIS PROPHYLAXIS
     Dates: end: 20090418
  7. FLURAZEPAM [Concomitant]
     Indication: INSOMNIA
     Dates: start: 20090101
  8. MOVICOLON [Concomitant]
     Indication: CONSTIPATION
     Dates: start: 20090402
  9. CALCIUM D3 [Concomitant]
     Indication: OSTEOPOROSIS PROPHYLAXIS
     Dates: start: 20090211
  10. SEROQUEL [Concomitant]
     Indication: DEPRESSION
     Dates: start: 20080101

REACTIONS (1)
  - HIDRADENITIS [None]
